FAERS Safety Report 7335987-0 (Version None)
Quarter: 2011Q1

REPORT INFORMATION
  Report Type: 
  Country: None (occurrence: None)
  Receive Date: 20110307
  Receipt Date: 20110225
  Transmission Date: 20110831
  Serious: Yes (Hospitalization)
  Sender: FDA-Public Use
  Company Number: PHHO2011US03799

PATIENT
  Sex: Female
  Weight: 152 kg

DRUGS (7)
  1. GILENYA [Suspect]
     Indication: RELAPSING-REMITTING MULTIPLE SCLEROSIS
     Dosage: CODE NOT BROKEN
     Route: 048
     Dates: start: 20090203, end: 20110219
  2. MULTI-VITAMINS [Concomitant]
  3. AMANTADINE HCL [Concomitant]
  4. VALIUM [Concomitant]
  5. INDERAL LA [Suspect]
     Indication: TREMOR
     Dosage: 80 MG, QD
     Route: 048
     Dates: start: 20030101, end: 20110224
  6. GILENYA [Suspect]
     Dosage: 0.5 MG, QD
     Route: 048
     Dates: start: 20110224
  7. NEURONTIN [Concomitant]

REACTIONS (2)
  - DIZZINESS [None]
  - ORTHOSTATIC HYPOTENSION [None]
